FAERS Safety Report 9000657 (Version 2)
Quarter: 2013Q2

REPORT INFORMATION
  Report Type: Spontaneous
  Country: US (occurrence: US)
  Receive Date: 20130107
  Receipt Date: 20130513
  Transmission Date: 20140414
  Serious: No
  Sender: FDA-Public Use
  Company Number: US-PFIZER INC-2013001655

PATIENT
  Age: 75 Year
  Sex: 0

DRUGS (4)
  1. SEPTRA DS [Suspect]
     Indication: URINARY TRACT INFECTION
     Dosage: 1 DF, 2X/DAY
     Route: 048
     Dates: start: 20070413, end: 20070418
  2. SEPTRA DS [Suspect]
     Dosage: 1 DF, 2X/DAY
     Route: 048
     Dates: start: 20080417, end: 20080424
  3. SEPTRA DS [Suspect]
     Dosage: 1 DF, 2X/DAY
     Route: 048
     Dates: start: 20090220, end: 20090221
  4. SULFAMETHOXAZOLE W/TRIMETHOPRIM [Concomitant]
     Indication: BRONCHITIS
     Dosage: 1 DF, 2X/DAY
     Route: 048
     Dates: start: 20080919, end: 20080926

REACTIONS (7)
  - Drug hypersensitivity [Unknown]
  - Rash [Recovered/Resolved]
  - Rash [Recovered/Resolved]
  - Rash [Recovered/Resolved]
  - Rash [Recovered/Resolved with Sequelae]
  - Pruritus [Recovered/Resolved with Sequelae]
  - Swelling [Recovered/Resolved with Sequelae]
